FAERS Safety Report 16458687 (Version 1)
Quarter: 2019Q2

REPORT INFORMATION
  Report Type: Spontaneous
  Country: US (occurrence: US)
  Receive Date: 20190620
  Receipt Date: 20190620
  Transmission Date: 20190711
  Serious: No
  Sender: FDA-Public Use
  Company Number: US-THERAPEUTICSMD-2019TMD00609

PATIENT
  Age: 64 Year
  Sex: Female
  Weight: 75.74 kg

DRUGS (4)
  1. IMVEXXY [Suspect]
     Active Substance: ESTRADIOL
     Indication: DYSPAREUNIA
  2. IMVEXXY [Suspect]
     Active Substance: ESTRADIOL
     Indication: VAGINAL LACERATION
     Dosage: 10 ?G, 1X/DAY AT BEDTIME
     Route: 067
     Dates: start: 20190329, end: 20190330
  3. DOXYCYCLINE. [Concomitant]
     Active Substance: DOXYCYCLINE
     Dosage: 50 MG, 2X/DAY
  4. FLUCONAZOLE. [Concomitant]
     Active Substance: FLUCONAZOLE
     Dosage: 150 MG, 1X/WEEK

REACTIONS (5)
  - Product residue present [Recovered/Resolved]
  - Exposure via skin contact [Recovered/Resolved]
  - Headache [Recovering/Resolving]
  - Nausea [Recovering/Resolving]
  - Underdose [Recovered/Resolved]

NARRATIVE: CASE EVENT DATE: 20190329
